FAERS Safety Report 5449240-3 (Version None)
Quarter: 2007Q3

REPORT INFORMATION
  Report Type: 
  Country: None (occurrence: None)
  Receive Date: 20070911
  Receipt Date: 20070904
  Transmission Date: 20080115
  Serious: Yes (Other)
  Sender: FDA-Public Use
  Company Number: CA-SHR-CA-2007-033371

PATIENT
  Age: 35 Year
  Sex: Female
  Weight: 68 kg

DRUGS (2)
  1. MIRENA [Suspect]
     Indication: CONTRACEPTION
     Dosage: 20 A?G/DAY, CONT
     Route: 015
     Dates: start: 20040701, end: 20070805
  2. ELOCON [Concomitant]
     Indication: ECZEMA
     Dates: start: 20040701

REACTIONS (11)
  - ALOPECIA [None]
  - AMENORRHOEA [None]
  - DIZZINESS [None]
  - DYSPNOEA [None]
  - ECZEMA [None]
  - GALACTORRHOEA [None]
  - HEART RATE IRREGULAR [None]
  - MIGRAINE [None]
  - PSORIASIS [None]
  - RAYNAUD'S PHENOMENON [None]
  - WEIGHT INCREASED [None]
